FAERS Safety Report 17303953 (Version 1)
Quarter: 2020Q1

REPORT INFORMATION
  Report Type: Spontaneous
  Country: US (occurrence: US)
  Receive Date: 20200122
  Receipt Date: 20200122
  Transmission Date: 20200409
  Serious: Yes (Hospitalization)
  Sender: FDA-Public Use
  Company Number: US-TWI PHARMACEUTICAL, INC-2020SCTW000003

PATIENT

DRUGS (3)
  1. BUPROPION HYDROCHLORIDE. [Suspect]
     Active Substance: BUPROPION HYDROCHLORIDE
     Indication: DEPRESSION
     Dosage: 1 DOSAGE FORM, QD
     Route: 048
  2. IBUPROFEN. [Suspect]
     Active Substance: IBUPROFEN
     Indication: PRODUCT USED FOR UNKNOWN INDICATION
     Route: 065
  3. SERTRALINE [Suspect]
     Active Substance: SERTRALINE HYDROCHLORIDE
     Indication: DEPRESSION
     Dosage: 20 MILLIGRAM, QD
     Route: 048

REACTIONS (5)
  - Generalised tonic-clonic seizure [Recovered/Resolved]
  - Altered state of consciousness [Recovered/Resolved]
  - Cardiogenic shock [Recovered/Resolved]
  - Ileus [Recovered/Resolved]
  - Intentional overdose [Unknown]
